FAERS Safety Report 9005316 (Version 1)
Quarter: 2013Q1

REPORT INFORMATION
  Report Type: Spontaneous
  Country: US (occurrence: US)
  Receive Date: 20130108
  Receipt Date: 20130108
  Transmission Date: 20140127
  Serious: No
  Sender: FDA-Public Use
  Company Number: US-GLAXOSMITHKLINE-A0996999A

PATIENT
  Age: 35 Year
  Sex: Male

DRUGS (2)
  1. POTIGA [Suspect]
     Route: 048
  2. UNSPECIFIED MEDICATION [Concomitant]

REACTIONS (3)
  - Erectile dysfunction [Unknown]
  - Memory impairment [Unknown]
  - Loss of libido [Unknown]
